FAERS Safety Report 4716001-X (Version None)
Quarter: 2005Q3

REPORT INFORMATION
  Report Type: 
  Country: None (occurrence: None)
  Receive Date: 20050718
  Receipt Date: 20041203
  Transmission Date: 20060218
  Serious: Yes (Other)
  Sender: FDA-Public Use
  Company Number: GB-GLAXOSMITHKLINE-B0361262A

PATIENT
  Sex: Female

DRUGS (2)
  1. PAROXETINE HYDROCHLORIDE [Suspect]
     Indication: ANXIETY
     Route: 065
     Dates: start: 19981021
  2. TRAZODONE HCL [Concomitant]
     Dosage: 50MG PER DAY
     Route: 065

REACTIONS (15)
  - ABNORMAL SENSATION IN EYE [None]
  - ANOREXIA [None]
  - DELUSION [None]
  - DIZZINESS [None]
  - ILL-DEFINED DISORDER [None]
  - INSOMNIA [None]
  - INTENTIONAL SELF-INJURY [None]
  - IRRITABILITY [None]
  - NAUSEA [None]
  - OVERDOSE [None]
  - PAIN [None]
  - SELF-INJURIOUS IDEATION [None]
  - TEARFULNESS [None]
  - VOMITING [None]
  - WEIGHT INCREASED [None]
